FAERS Safety Report 13560796 (Version 1)
Quarter: 2017Q2

REPORT INFORMATION
  Report Type: Spontaneous
  Country: US (occurrence: US)
  Receive Date: 20170518
  Receipt Date: 20170518
  Transmission Date: 20170830
  Serious: Yes (Hospitalization, Other)
  Sender: FDA-Public Use
  Company Number: US-ROCHE-726903

PATIENT
  Age: 67 Year
  Sex: Male
  Weight: 103 kg

DRUGS (7)
  1. XANAX [Concomitant]
     Active Substance: ALPRAZOLAM
     Indication: ANXIETY
     Dosage: DOSE: 0.5 T.EVERY 8-12
     Route: 048
  2. ASPIRIN. [Suspect]
     Active Substance: ASPIRIN
     Indication: CARDIOVASCULAR EVENT PROPHYLAXIS
     Route: 048
  3. NORVASC [Concomitant]
     Active Substance: AMLODIPINE BESYLATE
     Indication: HYPERTENSION
     Dosage: DOSE: 10 T. DAILY
     Route: 048
  4. BUMEX [Concomitant]
     Active Substance: BUMETANIDE
     Dosage: DOSE: 1 T.DAILY
     Route: 048
  5. NAPROSYN [Suspect]
     Active Substance: NAPROXEN
     Indication: SPONDYLITIS
     Dosage: OFF AND ON FOR 2-3 YEARS
     Route: 048
  6. METFORMIN [Concomitant]
     Active Substance: METFORMIN HYDROCHLORIDE
     Indication: BLOOD GLUCOSE
     Dosage: DOSE: 500
     Route: 048
  7. VICODIN [Concomitant]
     Active Substance: ACETAMINOPHEN\HYDROCODONE BITARTRATE
     Indication: PAIN
     Dosage: DOSE: ES T.EVERY 8-12
     Route: 048

REACTIONS (2)
  - Duodenal ulcer haemorrhage [Recovered/Resolved]
  - Haemorrhagic anaemia [Recovered/Resolved]

NARRATIVE: CASE EVENT DATE: 20090805
